FAERS Safety Report 6400856-7 (Version None)
Quarter: 2009Q4

REPORT INFORMATION
  Report Type: 
  Country: None (occurrence: None)
  Receive Date: 20091009
  Receipt Date: 20090309
  Transmission Date: 20100525
  Serious: Yes (Other)
  Sender: FDA-Public Use
  Company Number: 2009SP005248

PATIENT
  Age: 40 Year
  Sex: Female

DRUGS (2)
  1. TEMODAR [Suspect]
     Indication: DRUG USE FOR UNKNOWN INDICATION
     Dates: start: 20090201
  2. TOPAMAX [Suspect]

REACTIONS (1)
  - THROMBOCYTOPENIA [None]
